FAERS Safety Report 19064887 (Version 1)
Quarter: 2021Q1

REPORT INFORMATION
  Report Type: Spontaneous
  Country: VN (occurrence: VN)
  Receive Date: 20210326
  Receipt Date: 20210326
  Transmission Date: 20210420
  Serious: Yes (Hospitalization)
  Sender: FDA-Public Use
  Company Number: VN-B.I. PHARMACEUTICALS,INC./RIDGEFIELD-2021-BI-091805

PATIENT
  Age: 84 Year
  Sex: Male
  Weight: 65 kg

DRUGS (6)
  1. PRADAXA [Suspect]
     Active Substance: DABIGATRAN ETEXILATE MESYLATE
     Indication: ATRIAL FIBRILLATION
     Dosage: 1 CAP IN THE MORNING + 1 CAP IN THE AFTERNOON.
     Route: 048
     Dates: start: 20210317
  2. PANFOR SR [Concomitant]
     Indication: PRODUCT USED FOR UNKNOWN INDICATION
     Dosage: 1 TAB IN THE MORNING + 1 TAB IN THE AFTERNOON.
     Route: 048
     Dates: start: 20210317
  3. NEBIVOLOL. [Concomitant]
     Active Substance: NEBIVOLOL
     Indication: PRODUCT USED FOR UNKNOWN INDICATION
     Dosage: 1 TAB IN THE MORNING.
     Route: 048
     Dates: start: 20210126
  4. LANTUS [Concomitant]
     Active Substance: INSULIN GLARGINE
     Indication: PRODUCT USED FOR UNKNOWN INDICATION
     Dosage: SLOW?ACTING, LONG?ACTING INSULIN 300IU/3ML, INJECTION 15UI IN THE MORNING.
     Route: 058
     Dates: start: 20210317
  5. CRESTOR [Concomitant]
     Active Substance: ROSUVASTATIN CALCIUM
     Indication: PRODUCT USED FOR UNKNOWN INDICATION
     Route: 048
     Dates: start: 20210317
  6. TWYNSTA [Suspect]
     Active Substance: AMLODIPINE BESYLATE\TELMISARTAN
     Indication: HYPERTENSION
     Dosage: 1 TAB IN THE MORNING
     Route: 048
     Dates: start: 20210317

REACTIONS (1)
  - Lower gastrointestinal haemorrhage [Recovered/Resolved]
